FAERS Safety Report 16819566 (Version 4)
Quarter: 2021Q1

REPORT INFORMATION
  Report Type: Report from Study
  Country: US (occurrence: US)
  Receive Date: 20190917
  Receipt Date: 20210225
  Transmission Date: 20210419
  Serious: Yes (Hospitalization)
  Sender: FDA-Public Use
  Company Number: US-TAKEDA-2019TUS052494

PATIENT
  Sex: Female
  Weight: 92 kg

DRUGS (4)
  1. BRIGATINIB [Suspect]
     Active Substance: BRIGATINIB
     Indication: LUNG NEOPLASM MALIGNANT
     Dosage: 90 MILLIGRAM, QD
     Route: 065
     Dates: start: 20190821
  2. INSULIN [Concomitant]
     Active Substance: INSULIN NOS
  3. WATER. [Concomitant]
     Active Substance: WATER
  4. METFORMIN [Concomitant]
     Active Substance: METFORMIN HYDROCHLORIDE

REACTIONS (3)
  - Full blood count decreased [Unknown]
  - Asthenia [Unknown]
  - Product use issue [Unknown]
